FAERS Safety Report 7394761 (Version 8)
Quarter: 2018Q4

REPORT INFORMATION
  Report Type: Report from Study
  Country: JP (occurrence: JP)
  Receive Date: 20100520
  Receipt Date: 20181123
  Transmission Date: 20190205
  Serious: Yes (Death, Hospitalization, Other)
  Sender: FDA-Public Use
  Company Number: PHHY2008JP28292

PATIENT
  Age: 73 Year
  Sex: Female
  Weight: 45 kg

DRUGS (4)
  1. GLAKAY [Concomitant]
     Active Substance: MENATETRENONE
     Indication: MYELODYSPLASTIC SYNDROME
     Dosage: 45 MG, UNK
     Route: 048
     Dates: start: 20081030
  2. PRIMOBOLAN-DEPOT [Concomitant]
     Active Substance: METHENOLONE ENANTHATE
     Indication: MYELODYSPLASTIC SYNDROME
     Dosage: UNK
     Route: 065
     Dates: start: 20081030
  3. RED CELLS [Concomitant]
     Active Substance: HUMAN RED BLOOD CELL
     Indication: PRODUCT USED FOR UNKNOWN INDICATION
     Dosage: 2 U, UNK
     Route: 065
     Dates: start: 200609
  4. EXJADE [Suspect]
     Active Substance: DEFERASIROX
     Indication: MYELODYSPLASTIC SYNDROME
     Dosage: 1000 MG, QD
     Route: 048
     Dates: start: 20081030, end: 20081109

REACTIONS (21)
  - Conjunctival hyperaemia [Recovering/Resolving]
  - Pneumonia [Not Recovered/Not Resolved]
  - Erythema [Unknown]
  - Malignant neoplasm progression [Fatal]
  - Oral pain [Recovering/Resolving]
  - Platelet count decreased [Unknown]
  - Gamma-glutamyltransferase increased [Unknown]
  - Fungal infection [Unknown]
  - Pancytopenia [Fatal]
  - Pyrexia [Recovering/Resolving]
  - Rash [Unknown]
  - Serum ferritin increased [Unknown]
  - Neoplasm progression [Fatal]
  - Generalised erythema [Recovering/Resolving]
  - Haemorrhage subcutaneous [Unknown]
  - Red blood cell count decreased [Recovering/Resolving]
  - Pruritus [Recovering/Resolving]
  - C-reactive protein increased [Unknown]
  - Erythema multiforme [Recovered/Resolved]
  - Ocular hyperaemia [Recovering/Resolving]
  - Haemoglobin decreased [Not Recovered/Not Resolved]

NARRATIVE: CASE EVENT DATE: 20081103
